FAERS Safety Report 14655635 (Version 1)
Quarter: 2018Q1

REPORT INFORMATION
  Report Type: Spontaneous
  Country: PL (occurrence: PL)
  Receive Date: 20180319
  Receipt Date: 20180319
  Transmission Date: 20180509
  Serious: Yes (Other)
  Sender: FDA-Public Use
  Company Number: PL-TEVA-2018-PL-869458

PATIENT
  Age: 14 Year
  Sex: Female

DRUGS (4)
  1. SUMAMED [Suspect]
     Active Substance: AZITHROMYCIN ANHYDROUS
     Indication: PHARYNGEAL INFLAMMATION
  2. SUMAMED [Suspect]
     Active Substance: AZITHROMYCIN ANHYDROUS
     Indication: HERPES VIRUS INFECTION
     Dosage: 500 MILLIGRAM DAILY;
     Route: 065
     Dates: start: 20180301, end: 20180303
  3. PROBIOTIC [Concomitant]
     Active Substance: PROBIOTICS NOS
  4. LACTOANGIN [Concomitant]
     Dosage: 1 DOSAGE FORM = METABOLITES OF LACTIC ACID BACTERIA FROM THE GENUS LACTOBACILLUS + MENTHOL +MINT OIL

REACTIONS (7)
  - Arthralgia [Not Recovered/Not Resolved]
  - Headache [Not Recovered/Not Resolved]
  - Fatigue [Not Recovered/Not Resolved]
  - Myalgia [Not Recovered/Not Resolved]
  - Nausea [Recovered/Resolved]
  - Abdominal pain [Recovered/Resolved]
  - Loss of consciousness [Unknown]

NARRATIVE: CASE EVENT DATE: 20180302
